FAERS Safety Report 14502782 (Version 1)
Quarter: 2018Q1

REPORT INFORMATION
  Report Type: Spontaneous
  Country: DE (occurrence: DE)
  Receive Date: 20180208
  Receipt Date: 20180208
  Transmission Date: 20180509
  Serious: Yes (Other)
  Sender: FDA-Public Use
  Company Number: DE-ABBVIE-18K-062-2248608-00

PATIENT
  Sex: Male

DRUGS (1)
  1. HUMIRA [Suspect]
     Active Substance: ADALIMUMAB
     Indication: PSORIASIS
     Dosage: IRREGULARLY
     Route: 058
     Dates: start: 2012

REACTIONS (3)
  - Intentional product misuse [Unknown]
  - Demyelinating polyneuropathy [Not Recovered/Not Resolved]
  - Paresis [Unknown]

NARRATIVE: CASE EVENT DATE: 2012
